FAERS Safety Report 8960783 (Version 2)
Quarter: 2013Q2

REPORT INFORMATION
  Report Type: Report from Study
  Country: JP (occurrence: JP)
  Receive Date: 20121213
  Receipt Date: 20130408
  Transmission Date: 20140414
  Serious: Yes (Other)
  Sender: FDA-Public Use
  Company Number: JP-009507513-1212JPN003726

PATIENT
  Age: 43 Year
  Sex: Male
  Weight: 60 kg

DRUGS (12)
  1. PEGINTRON [Suspect]
     Indication: CHRONIC HEPATITIS C
     Dosage: 1.3 MICROGRAM PER KILOGRAM, QW
     Route: 058
     Dates: start: 20120522, end: 20120612
  2. PEGINTRON [Suspect]
     Dosage: 50 MICROGRAM, QW
     Route: 058
     Dates: start: 20120619, end: 20120626
  3. PEGINTRON [Suspect]
     Dosage: 80 MICROGRAM,QW
     Route: 058
     Dates: start: 20120724, end: 20120814
  4. PEGINTRON [Suspect]
     Dosage: 40 MICROGRAM, QW
     Route: 058
     Dates: start: 20120821, end: 20120911
  5. PEGINTRON [Suspect]
     Dosage: 50 MICROGRAM, QW
     Route: 058
     Dates: start: 20120918
  6. REBETOL [Suspect]
     Indication: CHRONIC HEPATITIS C
     Dosage: 800 MG, QD
     Route: 048
     Dates: start: 20120522, end: 20120912
  7. REBETOL [Suspect]
     Dosage: 600 MG, QD
     Route: 048
     Dates: start: 20120918
  8. TELAVIC [Suspect]
     Indication: CHRONIC HEPATITIS C
     Dosage: 1500 MG,QD
     Route: 048
     Dates: start: 20120522, end: 20120903
  9. ZYLORIC [Concomitant]
     Indication: PROPHYLAXIS
     Dosage: 2 DF, QD
     Route: 048
     Dates: start: 20120522, end: 20120911
  10. TALION (BEPOTASTINE BESYLATE) [Concomitant]
     Dosage: UNK
     Route: 048
     Dates: end: 20120903
  11. ANTEBATE [Concomitant]
     Dosage: FORMULATION: OIT
     Route: 061
  12. ALLELOCK [Concomitant]
     Dosage: FORMULATION: POR
     Route: 048
     Dates: end: 20120814

REACTIONS (2)
  - Anaemia [Not Recovered/Not Resolved]
  - White blood cell count decreased [Not Recovered/Not Resolved]
